FAERS Safety Report 9764653 (Version 1)
Quarter: 2013Q4

REPORT INFORMATION
  Report Type: Spontaneous
  Country: US (occurrence: None)
  Receive Date: 20131216
  Receipt Date: 20131216
  Transmission Date: 20140711
  Serious: Yes (Life-Threatening, Other)
  Sender: FDA-Public Use
  Company Number: None

PATIENT
  Age: 54 Year
  Sex: Male
  Weight: 86.18 kg

DRUGS (1)
  1. METFORMIN [Suspect]
     Indication: TYPE 1 DIABETES MELLITUS
     Dosage: 1 PILL DAILY; ONCE DAILY
     Route: 048

REACTIONS (3)
  - Blood glucose increased [None]
  - Weight decreased [None]
  - Product substitution issue [None]
